FAERS Safety Report 5592232-4 (Version None)
Quarter: 2007Q4

REPORT INFORMATION
  Report Type: 
  Country: None (occurrence: None)
  Receive Date: 20071217
  Receipt Date: 20071114
  Transmission Date: 20080405
  Serious: No
  Sender: FDA-Public Use
  Company Number: BDI-010564

PATIENT
  Sex: Male

DRUGS (3)
  1. MULTIHANCE [Suspect]
     Indication: DIZZINESS
     Dosage: 15 ML IV
     Route: 042
     Dates: start: 20071107, end: 20071107
  2. MULTIHANCE [Suspect]
     Indication: NUCLEAR MAGNETIC RESONANCE IMAGING BRAIN
     Dosage: 15 ML IV
     Route: 042
     Dates: start: 20071107, end: 20071107
  3. MULTIHANCE [Suspect]
     Indication: SYNCOPE
     Dosage: 15 ML IV
     Route: 042
     Dates: start: 20071107, end: 20071107

REACTIONS (2)
  - NAUSEA [None]
  - VOMITING [None]
